FAERS Safety Report 16654080 (Version 3)
Quarter: 2020Q3

REPORT INFORMATION
  Report Type: Spontaneous
  Country: US (occurrence: US)
  Receive Date: 20190731
  Receipt Date: 20200805
  Transmission Date: 20201102
  Serious: Yes (Other)
  Sender: FDA-Public Use
  Company Number: US-SA-2019SA011101

PATIENT

DRUGS (3)
  1. LANTUS SOLOSTAR [Suspect]
     Active Substance: INSULIN GLARGINE
     Indication: TYPE 2 DIABETES MELLITUS
     Dosage: 16 IU, QD
     Route: 065
     Dates: start: 20190101
  2. LANTUS SOLOSTAR [Suspect]
     Active Substance: INSULIN GLARGINE
     Dosage: 19 IU, QD
     Route: 065
     Dates: start: 202007
  3. HUMALOG [Concomitant]
     Active Substance: INSULIN LISPRO
     Dosage: UNK
     Route: 065

REACTIONS (4)
  - Bedridden [Unknown]
  - Cardiac disorder [Unknown]
  - Hip fracture [Unknown]
  - Feeling abnormal [Unknown]
